FAERS Safety Report 8979633 (Version 2)
Quarter: 2013Q1

REPORT INFORMATION
  Report Type: Spontaneous
  Country: US (occurrence: US)
  Receive Date: 20121221
  Receipt Date: 20130220
  Transmission Date: 20140127
  Serious: No
  Sender: FDA-Public Use
  Company Number: US-ASTRAZENECA-2012SE93969

PATIENT
  Age: 55 Year
  Sex: Male
  Weight: 129.3 kg

DRUGS (1)
  1. SEROQUEL [Suspect]
     Indication: SLEEP DISORDER
     Route: 048
     Dates: start: 201210

REACTIONS (2)
  - Urine alcohol test positive [Recovered/Resolved]
  - Off label use [Unknown]
